FAERS Safety Report 17888273 (Version 1)
Quarter: 2020Q2

REPORT INFORMATION
  Report Type: Spontaneous
  Country: US (occurrence: US)
  Receive Date: 20200611
  Receipt Date: 20200611
  Transmission Date: 20200714
  Serious: Yes (Other)
  Sender: FDA-Public Use
  Company Number: None

PATIENT
  Age: 54 Year
  Sex: Male
  Weight: 164 kg

DRUGS (18)
  1. NOREPINEPHRINE. [Concomitant]
     Active Substance: NOREPINEPHRINE
     Dates: start: 20200604, end: 20200610
  2. MIDAZOLAM. [Concomitant]
     Active Substance: MIDAZOLAM
     Dates: start: 20200605, end: 20200609
  3. REMDESIVIR. [Suspect]
     Active Substance: REMDESIVIR
     Indication: RESPIRATORY FAILURE
     Route: 042
     Dates: start: 20200605, end: 20200606
  4. AZITHROMYCIN ANHYDROUS. [Concomitant]
     Active Substance: AZITHROMYCIN ANHYDROUS
     Dates: start: 20200605, end: 20200608
  5. FAMOTIDINE. [Concomitant]
     Active Substance: FAMOTIDINE
     Dates: start: 20200605, end: 20200609
  6. PERICOLACE [Concomitant]
     Dates: start: 20200605
  7. SUCCINYLCHOLINE [Concomitant]
     Active Substance: SUCCINYLCHOLINE
     Dates: start: 20200604, end: 20200604
  8. FENTANYL. [Concomitant]
     Active Substance: FENTANYL
     Dates: start: 20200604, end: 20200609
  9. INSULIN LISPRO [Concomitant]
     Active Substance: INSULIN LISPRO
     Dates: start: 20200605
  10. VANCOMYCIN [Concomitant]
     Active Substance: VANCOMYCIN
     Dates: start: 20200605, end: 20200607
  11. REMDESIVIR. [Suspect]
     Active Substance: REMDESIVIR
     Indication: COVID-19 PNEUMONIA
     Route: 042
     Dates: start: 20200605, end: 20200606
  12. KETAMINE [Concomitant]
     Active Substance: KETAMINE
     Dates: start: 20200604, end: 20200604
  13. EPOPROSTENOL. [Concomitant]
     Active Substance: EPOPROSTENOL
     Dates: start: 20200605, end: 20200609
  14. CISATRACURIUM. [Concomitant]
     Active Substance: CISATRACURIUM
     Dates: start: 20200604, end: 20200608
  15. PROPOFOL. [Concomitant]
     Active Substance: PROPOFOL
     Dates: start: 20200604, end: 20200605
  16. CEFTRIAXONE. [Concomitant]
     Active Substance: CEFTRIAXONE
     Dates: start: 20200605, end: 20200607
  17. INSULIN REGULAR HUMAN [Concomitant]
     Dates: start: 20200605, end: 20200606
  18. HEPARIN [Concomitant]
     Active Substance: HEPARIN SODIUM
     Dates: start: 20200605

REACTIONS (4)
  - Blood bilirubin increased [None]
  - Aspartate aminotransferase increased [None]
  - Shock [None]
  - Disseminated intravascular coagulation [None]

NARRATIVE: CASE EVENT DATE: 20200605
